FAERS Safety Report 7545627-3 (Version None)
Quarter: 2011Q2

REPORT INFORMATION
  Report Type: 
  Country: None (occurrence: None)
  Receive Date: 20110614
  Receipt Date: 20110606
  Transmission Date: 20111010
  Serious: Yes (Hospitalization)
  Sender: FDA-Public Use
  Company Number: US-ASTELLAS-2011US002767

PATIENT
  Sex: Female
  Weight: 22 kg

DRUGS (4)
  1. AUGMENTIN '125' [Concomitant]
     Indication: EAR INFECTION
     Dosage: UNK
     Route: 048
     Dates: start: 20101217
  2. TACROLIMUS [Suspect]
     Indication: DERMATITIS ATOPIC
     Dosage: 0.03 %, WEEKLY
     Route: 061
     Dates: start: 20080325
  3. DERMA-SMOOTHE/FS [Concomitant]
     Indication: ECZEMA
     Dosage: UNK
     Route: 061
     Dates: start: 20101217
  4. TAMIFLU [Concomitant]
     Indication: INFLUENZA
     Dosage: UNK
     Route: 048
     Dates: start: 20110114

REACTIONS (2)
  - PNEUMONIA [None]
  - BRONCHOPNEUMONIA [None]
